FAERS Safety Report 16671552 (Version 2)
Quarter: 2019Q3

REPORT INFORMATION
  Report Type: Spontaneous
  Country: JP (occurrence: JP)
  Receive Date: 20190806
  Receipt Date: 20190814
  Transmission Date: 20191004
  Serious: Yes (Hospitalization, Other)
  Sender: FDA-Public Use
  Company Number: JP-TEVA-2019-JP-1084685

PATIENT
  Age: 85 Year
  Sex: Male

DRUGS (6)
  1. CARCOPA [Concomitant]
     Active Substance: CARBIDOPA\LEVODOPA
     Route: 065
  2. DONEPEZIL HYDROCHLORIDE. [Concomitant]
     Active Substance: DONEPEZIL HYDROCHLORIDE
     Route: 065
  3. RISUMIC [Concomitant]
     Active Substance: AMEZINIUM METILSULFATE
     Route: 065
  4. ABILIFY [Concomitant]
     Active Substance: ARIPIPRAZOLE
     Route: 065
  5. AZILECT [Suspect]
     Active Substance: RASAGILINE MESYLATE
     Indication: PARKINSON^S DISEASE
     Dosage: .5 MILLIGRAM DAILY; INTRAGASTRIC
     Route: 065
     Dates: start: 20180731, end: 20190601
  6. METLIGINE [Concomitant]
     Active Substance: MIDODRINE HYDROCHLORIDE
     Route: 065

REACTIONS (3)
  - Pneumonia [Unknown]
  - Product prescribing error [Unknown]
  - Thrombosis [Unknown]

NARRATIVE: CASE EVENT DATE: 20180731
